FAERS Safety Report 23521953 (Version 3)
Quarter: 2024Q2

REPORT INFORMATION
  Report Type: Spontaneous
  Country: US (occurrence: US)
  Receive Date: 20240214
  Receipt Date: 20240430
  Transmission Date: 20240716
  Serious: Yes (Hospitalization, Other)
  Sender: FDA-Public Use
  Company Number: US-HIKMA PHARMACEUTICALS USA INC.-US-H14001-24-01053

PATIENT
  Age: 16 Year
  Sex: Male
  Weight: 98.8 kg

DRUGS (16)
  1. MERCAPTOPURINE [Suspect]
     Active Substance: MERCAPTOPURINE
     Dosage: 125 MILLIGRAM, QD
     Route: 048
     Dates: start: 20231219, end: 20240118
  2. MERCAPTOPURINE [Suspect]
     Active Substance: MERCAPTOPURINE
     Dosage: 125 MILLIGRAM, QD FRIDAY TO SUNDAY
     Route: 048
     Dates: start: 20220118, end: 20231208
  3. MERCAPTOPURINE [Suspect]
     Active Substance: MERCAPTOPURINE
     Dosage: 150 MILLIGRAM, QD MONDAY TO THURSDAY
     Route: 048
     Dates: start: 20231219, end: 20240118
  4. MERCAPTOPURINE [Suspect]
     Active Substance: MERCAPTOPURINE
     Indication: Acute lymphocytic leukaemia
     Dosage: 150 MILLIGRAM, QD MONDAY-THURSDAY
     Route: 048
     Dates: start: 20220118, end: 20231208
  5. METHOTREXATE [Suspect]
     Active Substance: METHOTREXATE
     Indication: Acute lymphocytic leukaemia
     Dosage: 42.5 MILLIGRAM, WEEKLY
     Route: 048
     Dates: start: 20220118, end: 20231208
  6. METHOTREXATE [Suspect]
     Active Substance: METHOTREXATE
     Dosage: 42.5 MILLIGRAM, WEEKLY
     Route: 048
     Dates: start: 20231219, end: 20240118
  7. PREDNISONE [Suspect]
     Active Substance: PREDNISONE
     Dosage: 40 MILLIGRAM, QD IN PM
     Route: 048
     Dates: start: 20221107, end: 20231219
  8. PREDNISONE [Suspect]
     Active Substance: PREDNISONE
     Dosage: 40 MILLIGRAM, QD IN PM
     Route: 048
     Dates: start: 20240119
  9. PREDNISONE [Suspect]
     Active Substance: PREDNISONE
     Indication: Acute lymphocytic leukaemia
     Dosage: 45 MILLIGRAM, QD IN AM
     Route: 048
     Dates: start: 20221107, end: 20231219
  10. PREDNISONE [Suspect]
     Active Substance: PREDNISONE
     Dosage: 45 MILLIGRAM, QD IN IN AM
     Route: 048
     Dates: start: 20240119
  11. RUXOLITINIB [Suspect]
     Active Substance: RUXOLITINIB
     Indication: Acute lymphocytic leukaemia
     Dosage: 100 MILLIGRAM, BID D1-D15, D29-43, D57-71
     Route: 048
     Dates: start: 20220118, end: 20231212
  12. RUXOLITINIB [Suspect]
     Active Substance: RUXOLITINIB
     Dosage: UNK
     Dates: start: 20231218
  13. RUXOLITINIB [Suspect]
     Active Substance: RUXOLITINIB
     Dosage: UNK
  14. VINCRISTINE [Suspect]
     Active Substance: VINCRISTINE
     Indication: Acute lymphocytic leukaemia
     Dosage: 2 MILLIGRAM, QD
     Route: 042
     Dates: start: 20230201, end: 20240118
  15. VINCRISTINE [Suspect]
     Active Substance: VINCRISTINE
     Dosage: 2 MILLIGRAM, QD
     Route: 042
     Dates: start: 20240119
  16. GABAPENTIN [Concomitant]
     Active Substance: GABAPENTIN
     Indication: Product used for unknown indication
     Dosage: UNK
     Route: 065
     Dates: start: 20230206

REACTIONS (21)
  - Headache [Recovered/Resolved]
  - Pyrexia [Recovered/Resolved]
  - Meningitis cryptococcal [Recovering/Resolving]
  - Cough [Recovered/Resolved]
  - Hyperuricaemia [Recovered/Resolved]
  - Neutropenia [Recovered/Resolved]
  - Dehydration [Recovered/Resolved]
  - Nausea [Unknown]
  - Weight increased [Unknown]
  - Myalgia [Unknown]
  - Rhonchi [Recovered/Resolved]
  - Bronchiolitis [Unknown]
  - Reactive airways dysfunction syndrome [Unknown]
  - Wheezing [Recovered/Resolved]
  - Diarrhoea [Unknown]
  - Decreased appetite [Recovering/Resolving]
  - Platelet count decreased [Unknown]
  - Oedema [Unknown]
  - Gliosis [Unknown]
  - Productive cough [Recovered/Resolved]
  - Photophobia [Unknown]

NARRATIVE: CASE EVENT DATE: 20231126
